FAERS Safety Report 12305075 (Version 1)
Quarter: 2016Q2

REPORT INFORMATION
  Report Type: Spontaneous
  Country: US (occurrence: None)
  Receive Date: 20160425
  Receipt Date: 20160425
  Transmission Date: 20160815
  Serious: Yes (Hospitalization)
  Sender: FDA-Public Use
  Company Number: None

PATIENT
  Age: 23 Year
  Sex: Female
  Weight: 83.05 kg

DRUGS (2)
  1. CYCLOPHOSPHAMIDE. [Suspect]
     Active Substance: CYCLOPHOSPHAMIDE
     Dates: end: 20160418
  2. DOXORUBICIN HYDROCHLORIDE. [Suspect]
     Active Substance: DOXORUBICIN HYDROCHLORIDE
     Dates: end: 20160418

REACTIONS (14)
  - Back pain [None]
  - Hyponatraemia [None]
  - Dizziness [None]
  - Dizziness postural [None]
  - Lymphocyte count decreased [None]
  - Hypocalcaemia [None]
  - Anaemia [None]
  - Chest pain [None]
  - Musculoskeletal chest pain [None]
  - Nausea [None]
  - Vomiting [None]
  - Hypokalaemia [None]
  - Sinus bradycardia [None]
  - Bone pain [None]

NARRATIVE: CASE EVENT DATE: 20160418
